FAERS Safety Report 24691499 (Version 1)
Quarter: 2024Q4

REPORT INFORMATION
  Report Type: Report from Study
  Country: DE (occurrence: DE)
  Receive Date: 20241203
  Receipt Date: 20241203
  Transmission Date: 20250115
  Serious: Yes (Death, Hospitalization, Other)
  Sender: MYLAN
  Company Number: None

PATIENT
  Sex: Female

DRUGS (40)
  1. DOXORUBICIN [Suspect]
     Active Substance: DOXORUBICIN
     Indication: B-cell lymphoma
     Dosage: 76 MILLIGRAM, BIWEEKLY (LAST CYCLE: 28/OCT/2016)
     Route: 042
     Dates: start: 20160927, end: 20161124
  2. PEGFILGRASTIM [Suspect]
     Active Substance: PEGFILGRASTIM
     Indication: B-cell lymphoma
     Dosage: 6 MILLIGRAM, BIWEEKLY
     Route: 058
     Dates: start: 20161014
  3. MABTHERA [Suspect]
     Active Substance: RITUXIMAB
     Indication: B-cell lymphoma
     Dosage: 590 MILLIGRAM, BIWEEKLY
     Route: 042
     Dates: start: 20160926, end: 20161012
  4. NEULASTA [Suspect]
     Active Substance: PEGFILGRASTIM
     Indication: B-cell lymphoma
     Dosage: 6 MILLIGRAM, BIWEEKLY
     Route: 058
     Dates: start: 20161014
  5. NEULASTA [Suspect]
     Active Substance: PEGFILGRASTIM
     Dosage: 30 MIO IE/0,5ML, QD
     Route: 058
     Dates: start: 20161127
  6. CYCLOPHOSPHAMIDE [Suspect]
     Active Substance: CYCLOPHOSPHAMIDE
     Indication: B-cell lymphoma
     Dosage: 1140 MILLIGRAM, BIWEEKLY (LAST CYCLE: 28/OCT/2016)
     Route: 042
     Dates: start: 20160927, end: 20161124
  7. FILGRASTIM [Suspect]
     Active Substance: FILGRASTIM
     Indication: B-cell lymphoma
     Dosage: 30 MIO IE, QD
     Route: 058
     Dates: start: 20161127
  8. FILGRASTIM [Suspect]
     Active Substance: FILGRASTIM
     Dosage: 30 MIO IE, QD
     Route: 058
     Dates: start: 20161031, end: 20161107
  9. LENOGRASTIM [Suspect]
     Active Substance: LENOGRASTIM
     Indication: B-cell lymphoma
     Dosage: 34 MIO IE , QD
     Route: 058
     Dates: start: 20161019
  10. PREDNISONE [Suspect]
     Active Substance: PREDNISONE
     Indication: B-cell lymphoma
     Dosage: 100 MILLIGRAM, QD (LAST CYCLE: 28/OCT/2016)
     Route: 048
     Dates: start: 20160907, end: 20161128
  11. VINCRISTINE [Suspect]
     Active Substance: VINCRISTINE
     Indication: B-cell lymphoma
     Dosage: 3.16 MILLIGRAM, BIWEEKLY
     Route: 042
     Dates: start: 20160927, end: 20161124
  12. FUROSEMIDE [Concomitant]
     Active Substance: FUROSEMIDE
     Indication: Fluid retention
     Dosage: 2040 MILLIGRAM, AS NECESSARY (2040 MILLIGRAM, FOR 10 DAYS)
     Route: 042
     Dates: start: 20061116, end: 20161125
  13. ACYCLOVIR [Concomitant]
     Active Substance: ACYCLOVIR
     Indication: Infection prophylaxis
     Dosage: 400 MILLIGRAM, BID
     Route: 048
     Dates: start: 20161027
  14. ACYCLOVIR [Concomitant]
     Active Substance: ACYCLOVIR
     Dosage: 1600 MILLIGRAM, QD
     Route: 048
     Dates: start: 20161027
  15. ALLEVYN [Concomitant]
     Indication: Skin ulcer
     Dosage: UNK UNK, QD
     Route: 065
     Dates: start: 20161115
  16. ALLOPURINOL [Concomitant]
     Active Substance: ALLOPURINOL
     Indication: Prophylaxis
     Dosage: 300 MILLIGRAM, QD
     Route: 048
     Dates: start: 20161114
  17. ALLOPURINOL [Concomitant]
     Active Substance: ALLOPURINOL
     Dosage: 300 MILLIGRAM, QD
     Route: 048
     Dates: start: 20160906
  18. AMPHOTERICIN B [Concomitant]
     Active Substance: AMPHOTERICIN B
     Indication: Infection prophylaxis
     Dosage: 1 PIPETTE
     Route: 048
     Dates: start: 20161017
  19. AMPICILLIN [Concomitant]
     Active Substance: AMPICILLIN
     Indication: Infection prophylaxis
     Dosage: 1500 MILLIGRAM, QD
     Route: 048
     Dates: start: 20160913
  20. CHOLECALCIFEROL [Concomitant]
     Active Substance: CHOLECALCIFEROL
     Indication: Vitamin supplementation
     Dosage: 20000 INTERNATIONAL UNIT, QW (20000IE, 1-0-0, ONLY FRIDA)
     Route: 048
     Dates: start: 20161027
  21. DEXPANTHENOL [Concomitant]
     Active Substance: DEXPANTHENOL
     Indication: Skin ulcer
     Dosage: UNK UNK, PRN PRN ATLEAST BID
     Route: 062
     Dates: start: 20161114
  22. DULOXETINE [Concomitant]
     Active Substance: DULOXETINE
     Indication: Depression
     Dosage: 90 MILLIGRAM, QD
     Route: 048
     Dates: start: 20160901
  23. ENOXAPARIN SODIUM [Concomitant]
     Active Substance: ENOXAPARIN SODIUM
     Indication: Thrombosis prophylaxis
     Dosage: 5 MILLILITER, QD
     Route: 058
     Dates: start: 20160907, end: 20160929
  24. FOLIC ACID [Concomitant]
     Active Substance: FOLIC ACID
     Indication: Prophylaxis
     Dosage: 10 MILLIGRAM, QW (5 MILLIGRAM, 2 TIMES/WK)
     Route: 048
     Dates: start: 20161027
  25. FOLIC ACID [Concomitant]
     Active Substance: FOLIC ACID
     Dosage: 5 MILLIGRAM (1-0-0, ONLY MO+THU)
     Route: 048
  26. LEVOFLOXACIN [Concomitant]
     Active Substance: LEVOFLOXACIN
     Indication: Infection prophylaxis
     Dosage: 500 MILLIGRAM, Q3D
     Route: 048
     Dates: start: 20161017, end: 20161019
  27. POLYETHYLENE GLYCOLS [Concomitant]
     Active Substance: POLYETHYLENE GLYCOLS
     Indication: Constipation
     Dosage: UNK UNK, QD (1-1-0 BAGS)
     Route: 048
     Dates: start: 20161117
  28. METOCLOPRAMIDE [Concomitant]
     Active Substance: METOCLOPRAMIDE
     Indication: Nausea
     Dosage: 10 MILLIGRAM
     Route: 065
  29. METOPROLOL SUCCINATE [Concomitant]
     Active Substance: METOPROLOL SUCCINATE
     Indication: Hypertension
     Dosage: 95 MILLIGRAM, QD
     Route: 048
     Dates: start: 20160901
  30. MIRTAZAPINE [Concomitant]
     Active Substance: MIRTAZAPINE
     Indication: Depression
     Dosage: 15 MILLIGRAM, QD
     Route: 048
     Dates: start: 20160901
  31. PANTOPRAZOLE SODIUM [Concomitant]
     Active Substance: PANTOPRAZOLE SODIUM
     Dosage: 40 MILLIGRAM, QD
     Route: 048
     Dates: start: 20161107
  32. PIPERACILLIN [Concomitant]
     Active Substance: PIPERACILLIN
     Indication: Oropharyngeal pain
     Dosage: 12 GRAM, QD
     Route: 042
     Dates: start: 20161019
  33. RIVAROXABAN [Concomitant]
     Active Substance: RIVAROXABAN
     Indication: Oedema peripheral
     Dosage: 15 MILLIGRAM, QD
     Route: 048
     Dates: start: 20161012
  34. SULFAMETHOXAZOLE\TRIMETHOPRIM [Concomitant]
     Active Substance: SULFAMETHOXAZOLE\TRIMETHOPRIM
     Indication: Infection prophylaxis
     Dosage: 960 MILLIGRAM (1-0-1, ONLY MO+THU)
     Route: 048
     Dates: start: 20161027
  35. LEVOFLOXACIN [Concomitant]
     Active Substance: LEVOFLOXACIN
     Dosage: UNK
     Route: 065
  36. TAZOBACTAM [Concomitant]
     Active Substance: TAZOBACTAM
     Indication: Oropharyngeal pain
     Dosage: 1500 MILLIGRAM, QD
     Route: 042
     Dates: start: 20161019
  37. TORSEMIDE [Concomitant]
     Active Substance: TORSEMIDE
     Indication: Cardiac failure
     Dosage: 20 MILLIGRAM, QD
     Route: 048
  38. TORSEMIDE [Concomitant]
     Active Substance: TORSEMIDE
     Dosage: 10 MILLIGRAM, QD
     Route: 048
     Dates: start: 20161012
  39. TORSEMIDE [Concomitant]
     Active Substance: TORSEMIDE
     Dosage: 20 MILLIGRAM, QD
     Route: 048
     Dates: start: 20160901
  40. ZOPICLONE [Concomitant]
     Active Substance: ZOPICLONE
     Indication: Sleep disorder
     Dosage: 7.5 MILLIGRAM, QD (0-0-0-1)
     Route: 048
     Dates: start: 20161107

REACTIONS (15)
  - Pneumonia [Fatal]
  - Gait inability [Unknown]
  - Weight decreased [Not Recovered/Not Resolved]
  - Constipation [Recovered/Resolved]
  - Dysphagia [Not Recovered/Not Resolved]
  - Hypokalaemia [Recovered/Resolved]
  - Spinal fracture [Not Recovered/Not Resolved]
  - Anaemia [Recovered/Resolved]
  - Loss of consciousness [Unknown]
  - Dehydration [Recovered/Resolved]
  - Fatigue [Not Recovered/Not Resolved]
  - Asthenia [Unknown]
  - Leukopenia [Recovered/Resolved]
  - Streptococcal infection [Recovered/Resolved]
  - Thrombocytopenia [Recovered/Resolved]

NARRATIVE: CASE EVENT DATE: 20161001
